FAERS Safety Report 8854504 (Version 4)
Quarter: 2014Q1

REPORT INFORMATION
  Report Type: Spontaneous
  Country: US (occurrence: US)
  Receive Date: 20121023
  Receipt Date: 20140102
  Transmission Date: 20141002
  Serious: Yes (Other)
  Sender: FDA-Public Use
  Company Number: US-PFIZER INC-2012259142

PATIENT
  Age: 69 Year
  Sex: Male

DRUGS (2)
  1. VIAGRA [Suspect]
     Dosage: 100 MG, AS NEEDED (PRN)
     Route: 048
  2. AMBIEN [Suspect]
     Dosage: UNK
     Dates: start: 201206

REACTIONS (4)
  - Somnambulism [Unknown]
  - Fall [Unknown]
  - Tooth loss [Unknown]
  - Tooth disorder [Unknown]
